FAERS Safety Report 8320726-7 (Version None)
Quarter: 2012Q2

REPORT INFORMATION
  Report Type: 
  Country: None (occurrence: None)
  Receive Date: 20120430
  Receipt Date: 20120418
  Transmission Date: 20120825
  Serious: Yes (Hospitalization)
  Sender: FDA-Public Use
  Company Number: US-ELI_LILLY_AND_COMPANY-US201108005778

PATIENT
  Sex: Female

DRUGS (11)
  1. FORTEO [Suspect]
     Dosage: 20 UG, QD
  2. PREDNISONE [Concomitant]
  3. ESTRADIOL [Concomitant]
  4. FORTEO [Suspect]
     Indication: OSTEOPOROSIS
     Dosage: 20 UG, QD
     Dates: start: 20110809
  5. PHENOBARBITAL TAB [Concomitant]
  6. BYSTOLIC [Concomitant]
  7. PLAVIX [Concomitant]
  8. ANALGESICS [Concomitant]
  9. FOLIC ACID [Concomitant]
  10. FORTEO [Suspect]
     Dosage: 20 UG, QD
     Route: 065
  11. FORTEO [Suspect]
     Dosage: 20 UG, QD
     Route: 065
     Dates: end: 20120401

REACTIONS (11)
  - SYSTEMIC LUPUS ERYTHEMATOSUS [None]
  - NAUSEA [None]
  - SOMNOLENCE [None]
  - ANTICONVULSANT DRUG LEVEL ABOVE THERAPEUTIC [None]
  - RHINORRHOEA [None]
  - PHARYNGITIS STREPTOCOCCAL [None]
  - BLOOD PRESSURE INCREASED [None]
  - DECREASED APPETITE [None]
  - FATIGUE [None]
  - NERVE INJURY [None]
  - INFLUENZA [None]
